FAERS Safety Report 11363864 (Version 2)
Quarter: 2015Q3

REPORT INFORMATION
  Report Type: Spontaneous
  Country: JP (occurrence: JP)
  Receive Date: 20150811
  Receipt Date: 20150910
  Transmission Date: 20151125
  Serious: Yes (Other)
  Sender: FDA-Public Use
  Company Number: JP-ROCHE-1619729

PATIENT
  Age: 72 Year
  Sex: Male

DRUGS (3)
  1. ELPLAT [Concomitant]
     Active Substance: OXALIPLATIN
     Dosage: UNCERTAIN DOSAGE AND ONE COURSE
     Route: 041
  2. XELODA [Suspect]
     Active Substance: CAPECITABINE
     Indication: PRODUCT USED FOR UNKNOWN INDICATION
     Dosage: DOSAGE IS UNCERTAIN.
     Route: 048
  3. XELODA [Suspect]
     Active Substance: CAPECITABINE
     Indication: PRODUCT USED FOR UNKNOWN INDICATION
     Dosage: UNCERTAIN DOSAGE AND ONE COURSE
     Route: 048

REACTIONS (4)
  - Erythema [Unknown]
  - Rash [Unknown]
  - Fracture [Unknown]
  - Pruritus [Recovering/Resolving]
